FAERS Safety Report 7195692-0 (Version None)
Quarter: 2010Q4

REPORT INFORMATION
  Report Type: 
  Country: None (occurrence: None)
  Receive Date: 20101223
  Receipt Date: 20101007
  Transmission Date: 20110411
  Serious: No
  Sender: FDA-Public Use
  Company Number: US-AMGEN-KDL444154

PATIENT

DRUGS (2)
  1. ENBREL [Suspect]
     Indication: RHEUMATOID ARTHRITIS
     Dosage: 50 MG, QWK
     Route: 058
     Dates: start: 20100501
  2. METHOTREXATE [Concomitant]
     Dosage: UNK UNK, UNK

REACTIONS (4)
  - BRONCHITIS [None]
  - INJECTION SITE PAIN [None]
  - OROPHARYNGEAL PAIN [None]
  - SINUSITIS [None]
